FAERS Safety Report 7593184-8 (Version None)
Quarter: 2011Q3

REPORT INFORMATION
  Report Type: 
  Country: None (occurrence: None)
  Receive Date: 20110706
  Receipt Date: 20110624
  Transmission Date: 20111222
  Serious: Yes (Other)
  Sender: FDA-Public Use
  Company Number: US-BAYER-2011-031408

PATIENT
  Age: 25 Year
  Sex: Female
  Weight: 52.154 kg

DRUGS (12)
  1. YASMIN [Suspect]
     Indication: PRODUCT USED FOR UNKNOWN INDICATION
     Dosage: UNK
     Dates: start: 20030601, end: 20090701
  2. BLUEBERRY [Concomitant]
     Dosage: UNK UNK, QD
  3. D-MANNOSE [Concomitant]
     Dosage: UNK UNK, QD
  4. VITAMIN E [Concomitant]
     Dosage: UNK UNK, QD
  5. FISH OIL [Concomitant]
     Dosage: UNK UNK, QD
  6. CLARITIN-D 24 HOUR [Concomitant]
     Dosage: UNK UNK, QD
  7. CALCIUM CARBONATE [Concomitant]
     Dosage: UNK UNK, QD
  8. CRANBERRY [Concomitant]
     Dosage: UNK UNK, QD
  9. CALCIUM CARBONATE [Concomitant]
     Dosage: UNK UNK, QD
  10. ALAVERT D [Concomitant]
     Dosage: UNK UNK, QD
  11. DROSPIRENONE AND ETHINYL ESTRADIOL [Suspect]
     Indication: PRODUCT USED FOR UNKNOWN INDICATION
     Dosage: UNK
     Dates: start: 20030601, end: 20090701
  12. ASCORBIC ACID [Concomitant]
     Dosage: UNK UNK, QD

REACTIONS (4)
  - CHOLELITHIASIS [None]
  - PAIN [None]
  - NEPHROLITHIASIS [None]
  - CYSTITIS [None]
